FAERS Safety Report 5078236-9 (Version None)
Quarter: 2006Q3

REPORT INFORMATION
  Report Type: 
  Country: None (occurrence: None)
  Receive Date: 20060811
  Receipt Date: 20060725
  Transmission Date: 20061208
  Serious: Yes (Hospitalization)
  Sender: FDA-Public Use
  Company Number: FR-AVENTIS-200612602FR

PATIENT
  Age: 71 Year
  Sex: Male

DRUGS (7)
  1. FLAGYL [Suspect]
     Indication: LUNG ABSCESS
     Route: 042
     Dates: start: 20060518, end: 20060622
  2. TAZOCILLINE [Suspect]
     Indication: LUNG ABSCESS
     Route: 042
     Dates: start: 20060518, end: 20060622
  3. NEXIUM [Suspect]
     Indication: ABDOMINAL PAIN UPPER
     Route: 048
     Dates: start: 20060518, end: 20060622
  4. NEXIUM [Suspect]
     Indication: PROPHYLAXIS
     Route: 048
     Dates: start: 20060518, end: 20060622
  5. VANCOMYCIN [Suspect]
     Indication: LUNG ABSCESS
     Route: 042
     Dates: start: 20060518, end: 20060622
  6. LANTUS [Concomitant]
     Indication: DIABETES MELLITUS
     Route: 058
     Dates: start: 20060603
  7. FRAGMIN [Concomitant]
     Route: 058
     Dates: start: 20060518

REACTIONS (5)
  - DERMATITIS BULLOUS [None]
  - HERPES ZOSTER [None]
  - PETECHIAE [None]
  - PYREXIA [None]
  - TOXIC SKIN ERUPTION [None]
